FAERS Safety Report 6981605-0 (Version None)
Quarter: 2010Q3

REPORT INFORMATION
  Report Type: 
  Country: None (occurrence: None)
  Receive Date: 20100914
  Receipt Date: 20090903
  Transmission Date: 20110219
  Serious: No
  Sender: FDA-Public Use
  Company Number: US-PFIZER INC-2009266849

PATIENT
  Age: 68 Year
  Sex: Female
  Weight: 79.4 kg

DRUGS (4)
  1. LYRICA [Suspect]
     Dosage: 75 MG, 2X/DAY
     Dates: start: 20090801, end: 20090902
  2. DARVOCET [Concomitant]
     Indication: PAIN
     Dosage: UNK
  3. MOTRIN [Concomitant]
     Indication: PAIN
     Dosage: 800 MG, UNK
  4. VITAMINS [Concomitant]
     Dosage: UNK

REACTIONS (1)
  - HYPOAESTHESIA [None]
